FAERS Safety Report 4656452-5 (Version None)
Quarter: 2005Q2

REPORT INFORMATION
  Report Type: 
  Country: None (occurrence: None)
  Receive Date: 20050504
  Receipt Date: 20050425
  Transmission Date: 20051028
  Serious: No
  Sender: FDA-Public Use
  Company Number: 2005PK00419

PATIENT
  Sex: Male

DRUGS (1)
  1. CASODEX [Suspect]

REACTIONS (2)
  - ARTHRALGIA [None]
  - BLISTER [None]
